FAERS Safety Report 9631206 (Version 1)
Quarter: 2013Q4

REPORT INFORMATION
  Report Type: Spontaneous
  Country: FR (occurrence: None)
  Receive Date: 20131016
  Receipt Date: 20131016
  Transmission Date: 20140711
  Serious: Yes (Hospitalization)
  Sender: FDA-Public Use
  Company Number: SP07108

PATIENT
  Age: 59 Year
  Sex: Female

DRUGS (1)
  1. OSMOPREP [Suspect]
     Indication: COLONOSCOPY
     Route: 048
     Dates: start: 20130920, end: 20130920

REACTIONS (4)
  - Malaise [None]
  - Confusional state [None]
  - Amnesia [None]
  - Atrial fibrillation [None]
